FAERS Safety Report 16762179 (Version 5)
Quarter: 2019Q4

REPORT INFORMATION
  Report Type: Report from Study
  Country: None (occurrence: CO)
  Receive Date: 20190830
  Receipt Date: 20191104
  Transmission Date: 20200122
  Serious: Yes (Death, Hospitalization)
  Sender: FDA-Public Use
  Company Number: CO-ABBVIE-19K-036-2908596-00

PATIENT
  Age: 36 Year
  Sex: Male
  Weight: 80 kg

DRUGS (2)
  1. HUMIRA [Suspect]
     Active Substance: ADALIMUMAB
     Route: 058
     Dates: start: 2019, end: 201908
  2. HUMIRA [Suspect]
     Active Substance: ADALIMUMAB
     Indication: HIDRADENITIS
     Route: 058
     Dates: start: 20180905, end: 20190731

REACTIONS (13)
  - Headache [Not Recovered/Not Resolved]
  - Tuberculosis [Not Recovered/Not Resolved]
  - Coma [Unknown]
  - Pneumonia [Not Recovered/Not Resolved]
  - Purulence [Unknown]
  - Asphyxia [Not Recovered/Not Resolved]
  - General physical health deterioration [Unknown]
  - Immunodeficiency [Unknown]
  - Lung disorder [Unknown]
  - Death [Fatal]
  - Immunosuppression [Not Recovered/Not Resolved]
  - Asthenia [Not Recovered/Not Resolved]
  - Cardiac disorder [Unknown]

NARRATIVE: CASE EVENT DATE: 20190823
